FAERS Safety Report 5231871-7 (Version None)
Quarter: 2007Q1

REPORT INFORMATION
  Report Type: 
  Country: None (occurrence: None)
  Receive Date: 20070206
  Receipt Date: 20070125
  Transmission Date: 20070707
  Serious: Yes (Life-Threatening, Hospitalization)
  Sender: FDA-Public Use
  Company Number: DE-PFIZER INC-2006154257

PATIENT
  Sex: Male
  Weight: 90 kg

DRUGS (5)
  1. SU-011,248 [Suspect]
     Indication: METASTATIC RENAL CELL CARCINOMA
     Route: 048
     Dates: start: 20060515, end: 20061126
  2. PARACETAMOL [Concomitant]
     Dosage: FREQ:PRN
     Route: 048
  3. AGOPTON [Concomitant]
     Route: 048
  4. FRAGMIN [Concomitant]
     Route: 058
  5. METOCLOPRAMIDE HYDROCHLORIDE [Concomitant]
     Dosage: FREQ:PRN
     Route: 048

REACTIONS (6)
  - ANAEMIA [None]
  - BLOOD CALCIUM DECREASED [None]
  - BLOOD CHLORIDE DECREASED [None]
  - BLOOD ELECTROLYTES ABNORMAL [None]
  - BLOOD SODIUM DECREASED [None]
  - PLEURAL EFFUSION [None]
